FAERS Safety Report 19392852 (Version 1)
Quarter: 2021Q2

REPORT INFORMATION
  Report Type: Spontaneous
  Country: JP (occurrence: JP)
  Receive Date: 20210609
  Receipt Date: 20210609
  Transmission Date: 20210717
  Serious: Yes (Hospitalization)
  Sender: FDA-Public Use
  Company Number: JP-ACCORD-227699

PATIENT
  Age: 61 Year
  Sex: Male

DRUGS (6)
  1. ENALAPRIL [Suspect]
     Active Substance: ENALAPRIL
     Indication: PLEURAL EFFUSION
     Dosage: 5 MG
  2. AZOSEMIDE [Concomitant]
     Active Substance: AZOSEMIDE
     Indication: CARDIAC FAILURE
  3. DOBUTAMINE [Concomitant]
     Active Substance: DOBUTAMINE HYDROCHLORIDE
     Indication: CARDIAC FAILURE
     Dosage: 75 MG/D
  4. EPLERENONE. [Suspect]
     Active Substance: EPLERENONE
     Indication: PLEURAL EFFUSION
  5. PIMOBENDAN [Concomitant]
     Active Substance: PIMOBENDAN
     Indication: CARDIAC FAILURE
     Dosage: 5MG
  6. TOLVAPTAN [Concomitant]
     Active Substance: TOLVAPTAN
     Indication: CARDIAC FAILURE

REACTIONS (2)
  - Haemodynamic instability [Recovered/Resolved]
  - Blood pressure systolic decreased [Recovered/Resolved]
